FAERS Safety Report 5449279-8 (Version None)
Quarter: 2007Q3

REPORT INFORMATION
  Report Type: 
  Country: None (occurrence: None)
  Receive Date: 20070911
  Receipt Date: 20070831
  Transmission Date: 20080115
  Serious: Yes (Hospitalization, Other)
  Sender: FDA-Public Use
  Company Number: KR-PFIZER INC-2007017695

PATIENT
  Sex: Male
  Weight: 69 kg

DRUGS (6)
  1. SUTENT [Suspect]
     Indication: METASTATIC RENAL CELL CARCINOMA
     Route: 048
     Dates: start: 20061208, end: 20070408
  2. ACECLOFENAC [Concomitant]
     Route: 048
  3. MAGNESIUM OXIDE [Concomitant]
     Route: 048
  4. TRAMADOL HCL [Concomitant]
     Route: 048
  5. TEPRENONE [Concomitant]
     Route: 048
  6. OXYCODONE HCL [Concomitant]
     Route: 048

REACTIONS (2)
  - CARDIOMEGALY [None]
  - DYSPNOEA [None]
